FAERS Safety Report 6386495-5 (Version None)
Quarter: 2009Q4

REPORT INFORMATION
  Report Type: 
  Country: None (occurrence: None)
  Receive Date: 20091002
  Receipt Date: 20090616
  Transmission Date: 20100525
  Serious: No
  Sender: FDA-Public Use
  Company Number: US-ASTRAZENECA-2009UW15401

PATIENT
  Age: 75 Year
  Sex: Female
  Weight: 58.1 kg

DRUGS (4)
  1. ARIMIDEX [Suspect]
     Indication: BREAST CANCER
     Route: 048
     Dates: start: 20080924, end: 20090406
  2. FOSAMAX [Concomitant]
  3. AMBIEN [Concomitant]
  4. MINOCYCLINE HCL [Concomitant]

REACTIONS (3)
  - NAUSEA [None]
  - PAIN [None]
  - VITREOUS FLOATERS [None]
